FAERS Safety Report 5796472-0 (Version None)
Quarter: 2008Q4

REPORT INFORMATION
  Report Type: 
  Country: None (occurrence: None)
  Receive Date: 20080701
  Receipt Date: 20080620
  Transmission Date: 20090506
  Serious: Yes (Other)
  Sender: FDA-Public Use
  Company Number: PHEH2008US04176

PATIENT
  Sex: Female
  Weight: 59.637 kg

DRUGS (15)
  1. EXJADE [Suspect]
     Indication: IRON OVERLOAD
     Dosage: 625 MG, QD
     Route: 048
     Dates: start: 20080408, end: 20080429
  2. FOLIC ACID [Concomitant]
     Indication: PAROXYSMAL NOCTURNAL HAEMOGLOBINURIA
     Dosage: 1 QD
  3. ASPIRIN [Concomitant]
     Indication: PAROXYSMAL NOCTURNAL HAEMOGLOBINURIA
     Dosage: 81 MG, QD
  4. POLYGLYCOLIC ACID [Concomitant]
     Indication: CONSTIPATION
     Dosage: 17 GM PRN CONSTIPATION
  5. EX-LAX STOOL SOFTENER [Concomitant]
     Indication: CONSTIPATION
     Dosage: 3 STOOL SOFTNERS 1 AT SUPPER TIME PRN, 2 AT BEDTIME
  6. LEXAPRO [Concomitant]
     Indication: ANTIDEPRESSANT THERAPY
     Dosage: 10 MG, QD
  7. TOPROL-XL [Concomitant]
     Indication: BLOOD PRESSURE
     Dosage: 25 MG, QD
  8. MIRAPEX [Concomitant]
     Indication: RESTLESS LEGS SYNDROME
     Dosage: 0.5 MG, TID
  9. CALTRATE [Concomitant]
     Dosage: 1200 MG, QD
  10. MULTI-VITAMIN [Concomitant]
     Dosage: 1 QD
  11. ACTONEL [Concomitant]
     Indication: OSTEOPOROSIS
     Dosage: 35 MG, QW
  12. NITROGLICERINA [Concomitant]
     Indication: ANGINA PECTORIS
     Dosage: 0.4 MG, PRN FOR ANGINA
  13. PREVACID [Concomitant]
     Indication: GASTROOESOPHAGEAL REFLUX DISEASE
     Dosage: 30 MG, QD
  14. ZOCOR [Concomitant]
     Dosage: 10 MG, QD
  15. SOLIRIS [Suspect]

REACTIONS (2)
  - AMNESIA [None]
  - COGNITIVE DISORDER [None]
